FAERS Safety Report 10047453 (Version 3)
Quarter: 2014Q2

REPORT INFORMATION
  Report Type: Spontaneous
  Country: GB (occurrence: None)
  Receive Date: 20140327
  Receipt Date: 20140630
  Transmission Date: 20141212
  Serious: Yes (Congenital Anomaly, Other)
  Sender: FDA-Public Use
  Company Number: AUR-APL-2014-03612

PATIENT
  Sex: 0

DRUGS (3)
  1. CIPROFLOXACIN [Suspect]
     Indication: URINARY TRACT INFECTION
     Dosage: 1000 MG (500 MG, 2 IN 1 D), TRANSPLACENTAL
     Route: 064
     Dates: start: 20131109, end: 20131111
  2. TRIMETHOPRIM (TRIMETHOPRIM) [Concomitant]
  3. FOLIC ACID (FOLIC ACID) [Concomitant]

REACTIONS (3)
  - Maternal drugs affecting foetus [None]
  - Limb reduction defect [None]
  - Limb reduction defect [None]
